FAERS Safety Report 17584917 (Version 2)
Quarter: 2020Q2

REPORT INFORMATION
  Report Type: Spontaneous
  Country: US (occurrence: US)
  Receive Date: 20200326
  Receipt Date: 20200529
  Transmission Date: 20200713
  Serious: No
  Sender: FDA-Public Use
  Company Number: US-VERTEX PHARMACEUTICALS-2020-006245

PATIENT
  Age: 35 Year
  Sex: Male
  Weight: 69 kg

DRUGS (10)
  1. ZENPEP [Concomitant]
     Active Substance: PANCRELIPASE AMYLASE\PANCRELIPASE LIPASE\PANCRELIPASE PROTEASE
  2. TRIKAFTA [Suspect]
     Active Substance: ELEXACAFTOR\IVACAFTOR\TEZACAFTOR
     Indication: CYSTIC FIBROSIS
     Dosage: 2 ORANGE TAB 100 MG ELEXACAFTOR/ 50 MG TEZACAFTOR/ 75 MG IVACAFTOR; 1 BLUE TAB 150MG IVACAFTOR, BID
     Route: 048
     Dates: start: 20191114
  3. PROTONIX [OMEPRAZOLE] [Concomitant]
     Active Substance: OMEPRAZOLE
  4. HYPERSAL [Concomitant]
     Active Substance: SODIUM CHLORIDE
  5. CAYSTON [Concomitant]
     Active Substance: AZTREONAM
  6. LANTUS [Concomitant]
     Active Substance: INSULIN GLARGINE
  7. PULMOZYME [Concomitant]
     Active Substance: DORNASE ALFA
  8. VENTOLIN HFA [Concomitant]
     Active Substance: ALBUTEROL SULFATE
  9. ALBUTEROL SULFATE. [Concomitant]
     Active Substance: ALBUTEROL SULFATE
  10. ACTIGALL [Concomitant]
     Active Substance: URSODIOL

REACTIONS (1)
  - Upper respiratory tract infection [Recovered/Resolved]

NARRATIVE: CASE EVENT DATE: 202003
